FAERS Safety Report 13709143 (Version 1)
Quarter: 2017Q2

REPORT INFORMATION
  Report Type: Spontaneous
  Country: US (occurrence: US)
  Receive Date: 20170630
  Receipt Date: 20170630
  Transmission Date: 20170830
  Serious: No
  Sender: FDA-Public Use
  Company Number: None

PATIENT
  Age: 45 Year
  Sex: Female
  Weight: 69.75 kg

DRUGS (6)
  1. CLARITIN [Concomitant]
     Active Substance: LORATADINE
  2. NICAZEL FORTE [Concomitant]
  3. SYNTHROID [Concomitant]
     Active Substance: LEVOTHYROXINE SODIUM
  4. MAGNESIUM CITRATE. [Concomitant]
     Active Substance: MAGNESIUM CITRATE
  5. BOTOX [Suspect]
     Active Substance: ONABOTULINUMTOXINA
     Indication: SKIN COSMETIC PROCEDURE
     Dosage: 35 UNITS ONCE INTRAMUSCULAR?
     Route: 030
     Dates: start: 20170518
  6. STOOL SOFTENER (DOCUSATE) [Concomitant]
     Active Substance: DOCUSATE

REACTIONS (5)
  - Paraesthesia [None]
  - Vertigo [None]
  - Feeling hot [None]
  - Dizziness [None]
  - Influenza like illness [None]

NARRATIVE: CASE EVENT DATE: 20170518
